FAERS Safety Report 19101751 (Version 1)
Quarter: 2021Q2

REPORT INFORMATION
  Report Type: Spontaneous
  Country: JP (occurrence: JP)
  Receive Date: 20210407
  Receipt Date: 20210407
  Transmission Date: 20210717
  Serious: Yes (Hospitalization)
  Sender: FDA-Public Use
  Company Number: JP-ASTRAZENECA-2021A259992

PATIENT
  Age: 50 Year
  Sex: Male

DRUGS (9)
  1. RELVAR [Concomitant]
     Active Substance: FLUTICASONE FUROATE\VILANTEROL TRIFENATATE
     Dosage: DOSE UNKNOWN
     Route: 065
  2. UNIPHYL LA [Concomitant]
     Active Substance: THEOPHYLLINE ANHYDROUS
     Dosage: DOSE UNKNOWN
     Route: 065
  3. FINASTERIDE. [Concomitant]
     Active Substance: FINASTERIDE
     Dosage: DOSE UNKNOWN
     Route: 065
  4. MIYA?BM [Concomitant]
     Active Substance: CLOSTRIDIUM BUTYRICUM SPORES STRAIN M-55
     Dosage: DOSE UNKNOWN
     Route: 065
  5. FASENRA [Suspect]
     Active Substance: BENRALIZUMAB
     Indication: ASTHMA
     Dosage: 30.0MG UNKNOWN
     Route: 058
  6. IPD [Concomitant]
     Active Substance: SUPLATAST TOSILATE
     Dosage: DOSE UNKNOWN
     Route: 065
  7. L?CARBOCISTEINE [Concomitant]
     Active Substance: CARBOCYSTEINE
     Dosage: DOSE UNKNOWN
     Route: 065
  8. MUCOSOLVAN L [Concomitant]
     Active Substance: AMBROXOL HYDROCHLORIDE
     Dosage: DOSE UNKNOWN
     Route: 065
  9. SINGULAIR [Concomitant]
     Active Substance: MONTELUKAST SODIUM
     Dosage: DOSE UNKNOWN
     Route: 065

REACTIONS (1)
  - Bronchopulmonary aspergillosis [Not Recovered/Not Resolved]

NARRATIVE: CASE EVENT DATE: 202101
